FAERS Safety Report 10153348 (Version 1)
Quarter: 2014Q2

REPORT INFORMATION
  Report Type: Spontaneous
  Country: FR (occurrence: FR)
  Receive Date: 20140505
  Receipt Date: 20140505
  Transmission Date: 20141212
  Serious: Yes (Hospitalization)
  Sender: FDA-Public Use
  Company Number: FR-ELI_LILLY_AND_COMPANY-FR201404008367

PATIENT
  Age: 22 Year
  Sex: Male

DRUGS (3)
  1. GEMZAR [Suspect]
     Indication: HODGKIN^S DISEASE
     Dosage: 1680 MG, CYCLICAL
     Route: 042
     Dates: start: 20130808, end: 20140124
  2. CAELYX [Suspect]
     Indication: HODGKIN^S DISEASE
     Dosage: 25 MG, CYCLICAL
     Route: 042
     Dates: start: 20130808, end: 20140124
  3. NAVELBINE [Suspect]
     Indication: HODGKIN^S DISEASE
     Dosage: 30 MG, CYCLICAL
     Route: 042
     Dates: start: 20030108, end: 20140124

REACTIONS (1)
  - Pleural effusion [Not Recovered/Not Resolved]
